FAERS Safety Report 4381237-7 (Version None)
Quarter: 2004Q2

REPORT INFORMATION
  Report Type: 
  Country: None (occurrence: None)
  Receive Date: 20040616
  Receipt Date: 20040603
  Transmission Date: 20050107
  Serious: Yes (Other)
  Sender: FDA-Public Use
  Company Number: NSADSS2002025831

PATIENT
  Age: 52 Year
  Sex: Female
  Weight: 51.7101 kg

DRUGS (4)
  1. REMICADE [Suspect]
     Indication: CROHN'S DISEASE
     Dosage: 225 MG, 1 IN 1 AS NECESSARY, INTRAVENOUS DRIP
     Route: 041
     Dates: start: 19990510, end: 19990510
  2. SULFASALAZINE [Concomitant]
  3. LOMOTIL (DIPHENOXYLATE W/ATROPINE) [Concomitant]
  4. FOLIC ACID [Concomitant]

REACTIONS (1)
  - ANAEMIA [None]
